FAERS Safety Report 26101140 (Version 2)
Quarter: 2025Q4

REPORT INFORMATION
  Report Type: Spontaneous
  Country: EU (occurrence: EU)
  Receive Date: 20251128
  Receipt Date: 20251224
  Transmission Date: 20260117
  Serious: Yes (Other)
  Sender: TEVA
  Company Number: None

PATIENT
  Age: 23 Year
  Sex: Female

DRUGS (10)
  1. DIAZEPAM [Interacting]
     Active Substance: DIAZEPAM
     Indication: Anxiety
     Route: 048
     Dates: start: 20250930
  2. LORMETAZEPAM [Interacting]
     Active Substance: LORMETAZEPAM
     Indication: Insomnia
     Route: 048
     Dates: start: 20250922
  3. CARBAMAZEPINE [Interacting]
     Active Substance: CARBAMAZEPINE
     Indication: Psychiatric symptom
     Dosage: TIME INTERVAL: TOTAL
     Route: 048
     Dates: start: 20251024, end: 20251024
  4. CARBAMAZEPINE [Interacting]
     Active Substance: CARBAMAZEPINE
     Indication: Psychiatric symptom
     Dosage: TIME INTERVAL: TOTAL
     Route: 048
     Dates: start: 20251020, end: 20251020
  5. CARBAMAZEPINE [Interacting]
     Active Substance: CARBAMAZEPINE
     Indication: Psychiatric symptom
     Dosage: TIME INTERVAL: TOTAL
     Route: 048
     Dates: start: 20251021, end: 20251023
  6. CARBAMAZEPINE [Interacting]
     Active Substance: CARBAMAZEPINE
     Indication: Psychiatric symptom
     Dosage: TIME INTERVAL: TOTAL
     Route: 048
     Dates: start: 20251025, end: 20251027
  7. LEVOTHYROXINE [Concomitant]
     Active Substance: LEVOTHYROXINE
     Indication: Anxiety
     Route: 048
     Dates: start: 20250909
  8. TERALITHE [Interacting]
     Active Substance: LITHIUM CARBONATE
     Indication: Psychiatric symptom
     Route: 048
     Dates: start: 20250909
  9. TERALITHE [Interacting]
     Active Substance: LITHIUM CARBONATE
     Indication: Psychiatric symptom
     Route: 048
     Dates: start: 20250908
  10. OLANZAPINE [Interacting]
     Active Substance: OLANZAPINE
     Indication: Psychiatric symptom
     Route: 048
     Dates: start: 20250908

REACTIONS (2)
  - Cerebellar syndrome [Recovering/Resolving]
  - Drug interaction [Recovering/Resolving]

NARRATIVE: CASE EVENT DATE: 20251026
